FAERS Safety Report 9287694 (Version 1)
Quarter: 2013Q2

REPORT INFORMATION
  Report Type: Report from Study
  Country: DK (occurrence: DK)
  Receive Date: 20130514
  Receipt Date: 20130514
  Transmission Date: 20140414
  Serious: Yes (Other)
  Sender: FDA-Public Use
  Company Number: DK-JNJFOC-20130504076

PATIENT
  Age: 33 Year
  Sex: Female

DRUGS (2)
  1. REMICADE [Suspect]
     Indication: CROHN^S DISEASE
     Route: 042
     Dates: start: 20090323
  2. REMICADE [Suspect]
     Indication: CROHN^S DISEASE
     Dosage: DOSE- 260(UNITS UNSPECIFIED)
     Route: 042

REACTIONS (2)
  - Vulvovaginal candidiasis [Unknown]
  - Eczema [Unknown]
